FAERS Safety Report 23164093 (Version 1)
Quarter: 2023Q4

REPORT INFORMATION
  Report Type: Report from Study
  Country: JP (occurrence: JP)
  Receive Date: 20231109
  Receipt Date: 20231109
  Transmission Date: 20240109
  Serious: Yes (Disabling)
  Sender: FDA-Public Use
  Company Number: JP-MYE-2023M1117545AA

PATIENT
  Age: 4 Month
  Sex: Female

DRUGS (8)
  1. CARBOPLATIN [Suspect]
     Active Substance: CARBOPLATIN
     Indication: Atypical teratoid/rhabdoid tumour of CNS
     Dosage: PART OF ICE REGIMEN
     Route: 065
  2. CISPLATIN [Suspect]
     Active Substance: CISPLATIN
     Indication: Atypical teratoid/rhabdoid tumour of CNS
     Route: 065
  3. IFOSFAMIDE [Concomitant]
     Active Substance: IFOSFAMIDE
     Indication: Atypical teratoid/rhabdoid tumour of CNS
     Dosage: PART OF ICE REGIMEN
     Route: 065
  4. ETOPOSIDE [Concomitant]
     Active Substance: ETOPOSIDE
     Indication: Atypical teratoid/rhabdoid tumour of CNS
     Dosage: PART OF ICE REGIMEN
     Route: 065
  5. TOPOTECAN [Concomitant]
     Active Substance: TOPOTECAN HYDROCHLORIDE
     Indication: Atypical teratoid/rhabdoid tumour of CNS
     Dosage: ON DAYS -6 TO -2
     Route: 065
  6. TOPOTECAN [Concomitant]
     Active Substance: TOPOTECAN HYDROCHLORIDE
     Dosage: PART OF MAINTENANCE THERAPY
     Route: 037
  7. MELPHALAN [Concomitant]
     Active Substance: MELPHALAN
     Indication: Atypical teratoid/rhabdoid tumour of CNS
     Dosage: ON DAYS -3 TO -2
     Route: 065
  8. CYCLOPHOSPHAMIDE [Concomitant]
     Active Substance: CYCLOPHOSPHAMIDE
     Indication: Atypical teratoid/rhabdoid tumour of CNS
     Dosage: DOSE: 1 G/M 2 ON DAYS -6 TO -4
     Route: 065

REACTIONS (2)
  - Deafness neurosensory [Unknown]
  - Off label use [Unknown]
